FAERS Safety Report 8114052-9 (Version None)
Quarter: 2012Q1

REPORT INFORMATION
  Report Type: 
  Country: None (occurrence: None)
  Receive Date: 20120203
  Receipt Date: 20120125
  Transmission Date: 20120608
  Serious: Yes (Other)
  Sender: FDA-Public Use
  Company Number: CA-ASTRAZENECA-2012SE05093

PATIENT
  Age: 66 Year
  Sex: Male

DRUGS (9)
  1. FENTANYL CITRATE [Suspect]
     Indication: SPINAL ANAESTHESIA
     Route: 037
  2. FENTANYL CITRATE [Suspect]
     Indication: POSTOPERATIVE ANALGESIA
     Route: 037
  3. FENTANYL CITRATE [Suspect]
     Dosage: 1-2 UG/KG
     Route: 042
  4. MIDAZOLAM [Concomitant]
     Indication: SEDATIVE THERAPY
     Dosage: 0.05 MG/KG
     Route: 042
  5. OXYCODONE HCL [Concomitant]
     Indication: POSTOPERATIVE ANALGESIA
     Dosage: 5-15 MG
     Route: 048
  6. CHLOROPROCAINE HCL [Suspect]
     Indication: SPINAL ANAESTHESIA
     Dosage: 20 MG/ML
     Route: 037
  7. SODIUM CHLORIDE [Concomitant]
     Route: 042
  8. FENTANYL CITRATE [Suspect]
     Dosage: 1-2 UG/KG
     Route: 042
  9. ACETAMINOPHEN [Concomitant]
     Dosage: 975 MG FOR WEIGHT {50 KG AND 1000 MG FOR WEIGHT }50 KG
     Route: 048

REACTIONS (1)
  - CAUDA EQUINA SYNDROME [None]
